FAERS Safety Report 4324341-1 (Version None)
Quarter: 2004Q1

REPORT INFORMATION
  Report Type: 
  Country: None (occurrence: None)
  Receive Date: 20040326
  Receipt Date: 20040202
  Transmission Date: 20041129
  Serious: No
  Sender: FDA-Public Use
  Company Number: US-GLAXOSMITHKLINE-A0496037A

PATIENT
  Age: 43 Year
  Sex: Male

DRUGS (3)
  1. ADVAIR DISKUS 100/50 [Suspect]
     Dosage: 1PUFF TWICE PER DAY
     Route: 055
     Dates: start: 20031105
  2. THYROID TAB [Concomitant]
  3. PROTONIX [Concomitant]

REACTIONS (1)
  - BLOOD PRESSURE INCREASED [None]
